FAERS Safety Report 7382262-4 (Version None)
Quarter: 2011Q1

REPORT INFORMATION
  Report Type: 
  Country: None (occurrence: None)
  Receive Date: 20110329
  Receipt Date: 20110210
  Transmission Date: 20110831
  Serious: Yes (Hospitalization, Other)
  Sender: FDA-Public Use
  Company Number: US-BAYER-201026792NA

PATIENT
  Sex: Female
  Weight: 43.084 kg

DRUGS (3)
  1. YAZ [Suspect]
  2. YAZ [Suspect]
     Indication: PREMENSTRUAL SYNDROME
     Dosage: OTHER THAN 1 TAB DAILY, NEC
     Route: 048
     Dates: start: 20080129, end: 20081101
  3. ESTROSTEP FE [Concomitant]
     Dosage: UNK
     Dates: start: 20060217, end: 20080523

REACTIONS (4)
  - GALLBLADDER INJURY [None]
  - RENAL INJURY [None]
  - CHOLECYSTITIS [None]
  - GALLBLADDER DISORDER [None]
